FAERS Safety Report 10062428 (Version 1)
Quarter: 2014Q2

REPORT INFORMATION
  Report Type: Spontaneous
  Country: US (occurrence: US)
  Receive Date: 20140407
  Receipt Date: 20140407
  Transmission Date: 20141212
  Serious: Yes (Other)
  Sender: FDA-Public Use
  Company Number: US-BAYER-2014-050405

PATIENT
  Age: 41 Year
  Sex: Female
  Weight: 97.51 kg

DRUGS (4)
  1. YASMIN [Suspect]
  2. LEVOTHYROXINE [Concomitant]
     Dosage: 0.125 MG, UNK
  3. SYNTHROID [Concomitant]
  4. BEXTRA [Concomitant]
     Dosage: 20 MG, UNK

REACTIONS (1)
  - Pulmonary embolism [Recovering/Resolving]
